FAERS Safety Report 20802559 (Version 1)
Quarter: 2022Q2

REPORT INFORMATION
  Report Type: Spontaneous
  Country: US (occurrence: None)
  Receive Date: 20220509
  Receipt Date: 20220509
  Transmission Date: 20220721
  Serious: No
  Sender: FDA-Public Use
  Company Number: None

PATIENT
  Age: 32 Year
  Sex: Female
  Weight: 56.25 kg

DRUGS (1)
  1. HYDROCORTISONE ACETATE [Suspect]
     Active Substance: HYDROCORTISONE ACETATE
     Indication: Haemorrhoids
     Dosage: OTHER QUANTITY : 1 SUPPOSITORY(IES);?FREQUENCY : TWICE A DAY;?
     Route: 054
     Dates: start: 20220501, end: 20220506

REACTIONS (1)
  - Rash [None]
